FAERS Safety Report 7146591-1 (Version None)
Quarter: 2010Q4

REPORT INFORMATION
  Report Type: 
  Country: None (occurrence: None)
  Receive Date: 20101208
  Receipt Date: 20101201
  Transmission Date: 20110411
  Serious: No
  Sender: FDA-Public Use
  Company Number: US-PFIZER INC-2010162129

PATIENT
  Sex: Male
  Weight: 77 kg

DRUGS (4)
  1. EFFEXOR XR [Suspect]
     Indication: ANXIETY
     Dosage: 75 MG, DAILY
     Route: 048
     Dates: start: 20100709, end: 20100927
  2. EFFEXOR XR [Suspect]
     Indication: DEPRESSION
  3. HYZAAR [Concomitant]
     Indication: HYPERTENSION
     Dosage: UNK
  4. SITAGLIPTIN [Concomitant]
     Indication: DIABETES MELLITUS
     Dosage: UNK

REACTIONS (2)
  - CONFUSIONAL STATE [None]
  - DRUG INEFFECTIVE [None]
